FAERS Safety Report 4985070-4 (Version None)
Quarter: 2006Q2

REPORT INFORMATION
  Report Type: 
  Country: None (occurrence: None)
  Receive Date: 20060427
  Receipt Date: 20060315
  Transmission Date: 20061013
  Serious: Yes (Hospitalization)
  Sender: FDA-Public Use
  Company Number: JP-BOEHRINGER INGELHEIM PHARMACEUTICALS, INC.-2006-BP-02962NB

PATIENT
  Sex: Male

DRUGS (2)
  1. PERSANTIN [Suspect]
     Indication: CORONARY ARTERY SURGERY
     Route: 048
     Dates: start: 20020101
  2. ASPIRIN [Suspect]
     Route: 048
     Dates: start: 20020101

REACTIONS (1)
  - MUSCLE HAEMORRHAGE [None]
